FAERS Safety Report 8949477 (Version 1)
Quarter: 2012Q4

REPORT INFORMATION
  Report Type: 
  Country: US (occurrence: US)
  Receive Date: 20121206
  Receipt Date: 20121206
  Transmission Date: 20130627
  Serious: Yes (Hospitalization)
  Sender: FDA-Public Use
  Company Number: US-PFIZER INC-2012303929

PATIENT
  Age: 67 Year
  Sex: Male

DRUGS (1)
  1. VFEND [Suspect]
     Indication: ASPERGILLOSIS
     Dosage: 200 mg, 2x/day (1-200mg BID)

REACTIONS (1)
  - Pneumonia [Unknown]
